FAERS Safety Report 5422900-6 (Version None)
Quarter: 2007Q3

REPORT INFORMATION
  Report Type: 
  Country: None (occurrence: None)
  Receive Date: 20070822
  Receipt Date: 20070815
  Transmission Date: 20080115
  Serious: Yes (Other)
  Sender: FDA-Public Use
  Company Number: US-GENENTECH-246470

PATIENT
  Sex: Female

DRUGS (4)
  1. XOLAIR [Suspect]
     Indication: ASTHMA
     Dosage: UNK, 1/MONTH
     Route: 058
     Dates: end: 20070301
  2. XOLAIR [Suspect]
     Dosage: UNK, 2/MONTH
     Dates: start: 20070301
  3. FLOVENT [Concomitant]
     Indication: ASTHMA
     Dosage: 220 A?G, BID
  4. XOPENEX [Concomitant]
     Indication: ASTHMA
     Dosage: UNK, PRN

REACTIONS (3)
  - ASTHENIA [None]
  - BLOOD PRESSURE FLUCTUATION [None]
  - DYSPNOEA [None]
